FAERS Safety Report 12275541 (Version 1)
Quarter: 2016Q2

REPORT INFORMATION
  Report Type: Spontaneous
  Country: US (occurrence: US)
  Receive Date: 20160415
  Receipt Date: 20160415
  Transmission Date: 20160815
  Serious: Yes (Other)
  Sender: FDA-Public Use
  Company Number: ADR-2015-00838

PATIENT
  Age: 42 Year
  Sex: Female

DRUGS (2)
  1. BACLOFEN. [Suspect]
     Active Substance: BACLOFEN
     Dosage: 26.30 MCG/DAY
     Route: 037
     Dates: start: 20150415
  2. BACLOFEN. [Suspect]
     Active Substance: BACLOFEN
     Dosage: 26.30 MCG/DAY
     Route: 037

REACTIONS (2)
  - Muscle tightness [Recovered/Resolved]
  - Hypotonia [Recovered/Resolved]

NARRATIVE: CASE EVENT DATE: 20141103
